FAERS Safety Report 5524764-9 (Version None)
Quarter: 2007Q4

REPORT INFORMATION
  Report Type: 
  Country: None (occurrence: None)
  Receive Date: 20071123
  Receipt Date: 20071119
  Transmission Date: 20080405
  Serious: Yes (Other)
  Sender: FDA-Public Use
  Company Number: PHFR2007GB03411

PATIENT
  Age: 76 Year
  Sex: Female

DRUGS (9)
  1. ZOMETA [Suspect]
     Indication: BONE PAIN
     Dosage: 4 MG
     Route: 042
     Dates: start: 20071022, end: 20071022
  2. DIGOXIN [Concomitant]
     Dosage: 125 UG/DAY
     Route: 065
  3. EXEMESTANE [Concomitant]
     Dosage: 25 MG/DAY
     Route: 065
  4. FENTANYL [Concomitant]
     Dosage: 100 UG
     Route: 065
  5. FUROSEMIDE [Concomitant]
     Dosage: 40 MG/DAY
     Route: 065
  6. LEVOMEPROMAZINE [Concomitant]
     Dosage: 6 MG/DAY
     Route: 065
  7. LISINOPRIL [Concomitant]
     Dosage: 20 MG/DAY
     Route: 065
  8. OMEPRAZOLE [Concomitant]
     Dosage: 20 MG/DAY
     Route: 065
  9. WARFARIN SODIUM [Concomitant]
     Dosage: 2 MG/DAY
     Route: 065

REACTIONS (2)
  - CONFUSIONAL STATE [None]
  - INFLUENZA LIKE ILLNESS [None]
